FAERS Safety Report 5169875-5 (Version None)
Quarter: 2006Q4

REPORT INFORMATION
  Report Type: 
  Country: None (occurrence: None)
  Receive Date: 20061212
  Receipt Date: 20060307
  Transmission Date: 20070319
  Serious: Yes (Hospitalization)
  Sender: FDA-Public Use
  Company Number: US-ELI_LILLY_AND_COMPANY-US200605006508

PATIENT
  Age: 49 Year
  Sex: Female
  Weight: 63.492 kg

DRUGS (6)
  1. ZYPREXA [Suspect]
     Dosage: 20 MG, UNK
     Dates: start: 19970101, end: 20051201
  2. LITHIUM CARBONATE [Concomitant]
     Dates: start: 19860101
  3. PREDNISOLONE [Concomitant]
     Dates: start: 20020101, end: 20050101
  4. PREDNISONE TAB [Concomitant]
     Dates: start: 20020101, end: 20050101
  5. TRIAMCINOLONE [Concomitant]
     Dates: start: 20020101, end: 20050101
  6. CORTICOSTEROIDS [Concomitant]
     Dates: start: 20020101, end: 20050101

REACTIONS (2)
  - ADVERSE DRUG REACTION [None]
  - DIABETES MELLITUS [None]
